FAERS Safety Report 24650921 (Version 2)
Quarter: 2025Q4

REPORT INFORMATION
  Report Type: Spontaneous
  Country: US (occurrence: US)
  Receive Date: 20241122
  Receipt Date: 20251121
  Transmission Date: 20260118
  Serious: No
  Sender: ALVOGEN
  Company Number: US-ALVOGEN-2024094622

PATIENT
  Sex: Female

DRUGS (4)
  1. TERIPARATIDE [Suspect]
     Active Substance: TERIPARATIDE
     Indication: Osteoporosis
     Dosage: PRODUCT STARTED IN JAN-2024
     Dates: start: 202401
  2. TERIPARATIDE [Suspect]
     Active Substance: TERIPARATIDE
     Indication: Osteoporosis
     Dosage: ENCOUNTERED ISSUE 3 OR 4 MONTHS AGO; DISCARDED THAT PEN
     Dates: start: 2024
  3. TERIPARATIDE [Suspect]
     Active Substance: TERIPARATIDE
     Indication: Osteoporosis
     Dosage: EXP. DATE: UU-NOV-2024?DAILY?PRODUCT STORAGE ERROR
     Dates: start: 2024
  4. TERIPARATIDE [Suspect]
     Active Substance: TERIPARATIDE
     Indication: Osteoporosis
     Dosage: EXP. DATE: NOV-2025?DAILY?PRODUCT SERIAL NUMBER 0100347781652890
     Dates: start: 2024

REACTIONS (4)
  - Product storage error [Unknown]
  - Device malfunction [Unknown]
  - Device operational issue [Unknown]
  - Needle issue [Unknown]

NARRATIVE: CASE EVENT DATE: 20240101
